FAERS Safety Report 21329417 (Version 2)
Quarter: 2022Q3

REPORT INFORMATION
  Report Type: Spontaneous
  Country: SE (occurrence: SE)
  Receive Date: 20220913
  Receipt Date: 20220923
  Transmission Date: 20221026
  Serious: Yes (Hospitalization)
  Sender: FDA-Public Use
  Company Number: SE-Accord-277455

PATIENT
  Age: 73 Year
  Sex: Male
  Weight: 62 kg

DRUGS (12)
  1. OXALIPLATIN [Suspect]
     Active Substance: OXALIPLATIN
     Indication: Product used for unknown indication
     Dosage: STRENGTH: 5 MG/ML
  2. ESOMEPRAZOLE [Concomitant]
     Active Substance: ESOMEPRAZOLE
     Indication: Gastric mucosal lesion
     Dosage: ENTERIC TABLET, 1 TABLET DAILY, STRENGTH: 40MG
  3. POLYETHYLENE GLYCOL 4000 [Concomitant]
     Active Substance: POLYETHYLENE GLYCOL 4000
     Indication: Constipation
     Dosage: 1-2 DF DAILY, STRENGTH: 10G
  4. CALCIUM\CHOLECALCIFEROL [Concomitant]
     Active Substance: CALCIUM\CHOLECALCIFEROL
     Indication: Vitamin supplementation
     Dosage: 1 TAB MORNING AND 1 TAB EVENING, STRENGTH: 500MG/400IE
  5. INNOHEP [Concomitant]
     Active Substance: TINZAPARIN SODIUM
     Indication: Prophylaxis
     Dosage: SOLUTION FOR INJECTION IN PRE FILLED SYRINGE, 14000 ANTI-XA IE
     Route: 058
  6. BETOLVEX [Concomitant]
     Indication: Vitamin supplementation
     Dosage: STRENGTH: 1MG, 1 TABLET DAILY
  7. BISOPROLOL [Concomitant]
     Active Substance: BISOPROLOL
     Dosage: STRENGTH: 2.5MG, 1 TABLET DAILY FOR THE HEART
  8. ACETAMINOPHEN [Concomitant]
     Active Substance: ACETAMINOPHEN
     Indication: Pain
     Dosage: STRENGTH: 500MG, 1 TAB/MAX 8 TABLETS AS NECESSARY
  9. ACETYLCYSTEINE [Concomitant]
     Active Substance: ACETYLCYSTEINE
     Indication: Productive cough
     Dosage: STRENGTH: 200MG, 1 TAB DAILY TO BE SOLVED IN GLASS OF WATER CAN BE TAKEN 3 TIMES DAILY
  10. PRIMPERAN [Concomitant]
     Active Substance: METOCLOPRAMIDE HYDROCHLORIDE
     Indication: Prophylaxis of nausea and vomiting
     Dosage: STRENGTH: 10MG
  11. SODIUM PICOSULFATE [Concomitant]
     Active Substance: SODIUM PICOSULFATE
     Indication: Constipation
     Dosage: STRENGTH: 7.5MG/ML, 15 DROPS AS NECESSARY
     Route: 048
  12. DESLORATADINE [Concomitant]
     Active Substance: DESLORATADINE
     Dosage: STRENGTH: 5MG, 2 TABLETS AS NECESSARY

REACTIONS (8)
  - Respiratory distress [Unknown]
  - Hypotension [Unknown]
  - Chest pain [Recovered/Resolved]
  - Erythema [Recovered/Resolved]
  - Back pain [Recovered/Resolved]
  - Nausea [Recovered/Resolved]
  - Hypoxia [Recovered/Resolved]
  - Productive cough [Recovered/Resolved]

NARRATIVE: CASE EVENT DATE: 20220830
